FAERS Safety Report 4519500-9 (Version None)
Quarter: 2004Q4

REPORT INFORMATION
  Report Type: 
  Country: None (occurrence: None)
  Receive Date: 20041202
  Receipt Date: 20041123
  Transmission Date: 20050328
  Serious: No
  Sender: FDA-Public Use
  Company Number: 04H-087-0279432-00

PATIENT
  Age: 75 Year
  Sex: Male

DRUGS (3)
  1. HEPARIN SODIUM [Suspect]
     Indication: CEREBRAL THROMBOSIS
     Dosage: 10000 UNIT, NOT REPORTED
     Dates: start: 20020821, end: 20020901
  2. ARGATROBAN [Concomitant]
  3. OZAGREL SODIUM [Concomitant]

REACTIONS (6)
  - DEPRESSED LEVEL OF CONSCIOUSNESS [None]
  - DIPLOPIA [None]
  - DISSEMINATED INTRAVASCULAR COAGULATION [None]
  - HEMIPLEGIA [None]
  - HEPARIN-INDUCED THROMBOCYTOPENIA [None]
  - INFARCTION [None]
